FAERS Safety Report 10637547 (Version 3)
Quarter: 2014Q4

REPORT INFORMATION
  Report Type: Not Available
  Country: US (occurrence: US)
  Receive Date: 20141208
  Receipt Date: 20141212
  Transmission Date: 20150529
  Serious: Yes (Other)
  Sender: FDA-Public Use
  Company Number: US-BEH-2014042282

PATIENT
  Age: 15 Year
  Sex: Female
  Weight: 64 kg

DRUGS (9)
  1. ACETAMINOPHEN. [Concomitant]
     Active Substance: ACETAMINOPHEN
     Dosage: X1
     Route: 048
     Dates: start: 20130228, end: 20130228
  2. PLATELETS [Concomitant]
     Active Substance: HUMAN PLATELET, ALLOGENIC
     Dosage: 160 ML TRANSFUSED
  3. PRIVIGEN [Suspect]
     Active Substance: HUMAN IMMUNOGLOBULIN G
     Dosage: 51.6 GM TOTAL
     Route: 042
     Dates: start: 20130228, end: 20130228
  4. ALL OTHER THERAPEUTIC PRODUCTS [Concomitant]
     Active Substance: UNSPECIFIED INGREDIENT
     Dosage: D51/2 NSS WITH 20 MEQ KCL; 100 ML/HR
     Route: 042
     Dates: start: 20130227, end: 20130228
  5. PRIVIGEN [Suspect]
     Active Substance: HUMAN IMMUNOGLOBULIN G
     Indication: IMMUNE THROMBOCYTOPENIC PURPURA
     Dosage: 51.6 GM TOTAL
     Route: 042
     Dates: start: 20130228, end: 20130228
  6. DIPHENHYDRAMINE [Concomitant]
     Active Substance: DIPHENHYDRAMINE
     Route: 042
     Dates: start: 20130227, end: 20130228
  7. ATENOLOL. [Concomitant]
     Active Substance: ATENOLOL
     Route: 048
     Dates: start: 20130227
  8. PRIVIGEN [Suspect]
     Active Substance: HUMAN IMMUNOGLOBULIN G
     Dosage: 51.6 GM TOTAL
     Route: 042
     Dates: start: 20130228, end: 20130228
  9. PRIVIGEN [Suspect]
     Active Substance: HUMAN IMMUNOGLOBULIN G
     Dosage: 51.6 GM TOTAL
     Route: 042
     Dates: start: 20130228, end: 20130228

REACTIONS (1)
  - Burkholderia test positive [Unknown]
